FAERS Safety Report 14072899 (Version 1)
Quarter: 2017Q4

REPORT INFORMATION
  Report Type: Spontaneous
  Country: US (occurrence: None)
  Receive Date: 20171011
  Receipt Date: 20171011
  Transmission Date: 20180321
  Serious: No
  Sender: FDA-Public Use
  Company Number: None

PATIENT

DRUGS (1)
  1. TESTOSTERONE CYPIONATE. [Suspect]
     Active Substance: TESTOSTERONE CYPIONATE

REACTIONS (8)
  - Migraine [None]
  - Fatigue [None]
  - Hormone level abnormal [None]
  - Withdrawal syndrome [None]
  - Drug prescribing error [None]
  - Insomnia [None]
  - Impaired work ability [None]
  - Sexual dysfunction [None]
